FAERS Safety Report 8460830 (Version 7)
Quarter: 2013Q2

REPORT INFORMATION
  Report Type: Spontaneous
  Country: US (occurrence: None)
  Receive Date: 20120227
  Receipt Date: 20130417
  Transmission Date: 20140414
  Serious: Yes (Death, Hospitalization)
  Sender: FDA-Public Use
  Company Number: 2012PROUSA01074

PATIENT
  Age: 65 Year
  Sex: 0
  Weight: 56.3 kg

DRUGS (13)
  1. PROVENGE (SIPULEUCEL-T) SUSPENSION [Suspect]
     Indication: PROSTATE CANCER METASTATIC
     Dosage: 250 ML, SINGLE, INTRAVENOUS
     Route: 042
     Dates: start: 20120119, end: 20120119
  2. FLUOXETINE (FLUOXETINE) [Concomitant]
  3. FOLIC ACID (FOLIC ACID) [Concomitant]
  4. OMEPRAZOLE (OMEPRAZOLE) [Concomitant]
  5. OXYBUTYNIN (OXYBUTYNIN) [Concomitant]
  6. POTASSIUM CHLORIDE (POTASSIUM CHLORIDE) [Concomitant]
  7. LEVOTHYROXINE SODIUM (LEVOTHYROXINE SODIUM) [Concomitant]
  8. PROCHLORPERAZINE MALEATE (PROCHLORPERAZINE MALEATE) [Concomitant]
  9. ABIRATERONE (ABIRATERONE) [Concomitant]
  10. PROCHLORPERAZINE MALEATE (PROCHLORPERAZINE MALEATE) [Concomitant]
  11. MORPHINE SULFATE (MORPHINE SULFATE) [Concomitant]
  12. ZOFRAN /00955301/ (ONDANSETRON) [Concomitant]
  13. PREDNISONE (PREDNISONE) [Concomitant]

REACTIONS (12)
  - Haemorrhage intracranial [None]
  - Skull fracture [None]
  - Fall [None]
  - Subdural haematoma [None]
  - Syncope [None]
  - Brain injury [None]
  - Metastasis [None]
  - Respiratory failure [None]
  - Contusion [None]
  - Brain oedema [None]
  - Subdural haemorrhage [None]
  - Encephalopathy [None]
